FAERS Safety Report 8429014-1 (Version None)
Quarter: 2012Q2

REPORT INFORMATION
  Report Type: 
  Country: None (occurrence: None)
  Receive Date: 20120605
  Receipt Date: 20120523
  Transmission Date: 20120825
  Serious: Yes (Hospitalization)
  Sender: FDA-Public Use
  Company Number: 12US004587

PATIENT
  Age: 15 Year
  Sex: Female
  Weight: 52.2 kg

DRUGS (7)
  1. CLINDAMYCIN PHOSPHATE AND BENZOYL PEROXIDE [Suspect]
     Indication: ACNE
     Dosage: ONCE DAILY, TOPICAL
     Route: 061
     Dates: start: 20120526
  2. CLINDAMYCIN PHOSPHATE AND BENZOYL PEROXIDE [Suspect]
     Indication: ACNE
     Dosage: ONCE DAILY, TOPICAL
     Route: 061
     Dates: start: 20120322, end: 20120522
  3. IBUPROFEN (ADVIL) [Concomitant]
  4. EXCEDRIN MIGRAINE (ACETYLSALICYLIC ACID, CAFFEINE, PARACETAMOL) [Concomitant]
  5. CLINDAMYCIN [Concomitant]
  6. MULTIVITAMIN [Concomitant]
  7. MIDOL (ACETYLSALICYLIC ACID, CAFFEINE, CINNAMEDRINE, PHENACETIN) [Concomitant]

REACTIONS (2)
  - VIRAL PHARYNGITIS [None]
  - HEADACHE [None]
